FAERS Safety Report 22328244 (Version 5)
Quarter: 2023Q4

REPORT INFORMATION
  Report Type: Report from Study
  Country: GB (occurrence: GB)
  Receive Date: 20230517
  Receipt Date: 20231027
  Transmission Date: 20240110
  Serious: Yes (Death, Other)
  Sender: FDA-Public Use
  Company Number: GB-CELLTRION INC.-2023GB010005

PATIENT

DRUGS (14)
  1. BEVACIZUMAB [Suspect]
     Active Substance: BEVACIZUMAB
     Indication: Hepatocellular carcinoma
     Dosage: 900 MG
     Route: 065
     Dates: start: 20220518
  2. ATEZOLIZUMAB [Suspect]
     Active Substance: ATEZOLIZUMAB
     Indication: Hepatocellular carcinoma
     Dosage: 1200 MG, 3 WEEKS (ON 29/JUN/2022 END DATE OF MOST RECENT DOSE OF STUDY DRUG PRIOR TO AE)
     Route: 042
     Dates: start: 20220518
  3. ATEZOLIZUMAB [Suspect]
     Active Substance: ATEZOLIZUMAB
     Dosage: UNK
  4. ATEZOLIZUMAB [Suspect]
     Active Substance: ATEZOLIZUMAB
     Dosage: UNK
  5. BETNOVATE [Concomitant]
     Active Substance: BETAMETHASONE
  6. DEXAMETHASONE [Concomitant]
     Active Substance: DEXAMETHASONE
     Dosage: EVERY 0.33 DAYS
     Dates: start: 202204, end: 20220623
  7. DICLOFENAC SODIUM [Concomitant]
     Active Substance: DICLOFENAC\DICLOFENAC SODIUM
  8. LENVATINIB [Concomitant]
     Active Substance: LENVATINIB
     Dosage: UNK
     Dates: start: 20221107
  9. MEGESTROL ACETATE [Concomitant]
     Active Substance: MEGESTROL ACETATE
     Dosage: UNK, QD
     Dates: start: 202209
  10. OMEPRAZOLE [Concomitant]
     Active Substance: OMEPRAZOLE
  11. ORAMORPH SR SUSTAINED RELEASE [Concomitant]
     Active Substance: MORPHINE SULFATE
     Dosage: UNK
     Dates: start: 202204
  12. ACETAMINOPHEN [Concomitant]
     Active Substance: ACETAMINOPHEN
     Dosage: UNK
     Dates: start: 202204
  13. RAMIPRIL [Concomitant]
     Active Substance: RAMIPRIL
     Dosage: UNK, QD
     Dates: start: 202201
  14. CARBOHYDRATES\FATTY ACIDS\MINERALS\PROTEIN\VITAMINS [Concomitant]
     Active Substance: CARBOHYDRATES\FATTY ACIDS\MINERALS\PROTEIN\VITAMINS

REACTIONS (9)
  - Death [Fatal]
  - COVID-19 [Recovered/Resolved]
  - Colitis [Recovered/Resolved]
  - Decreased appetite [Not Recovered/Not Resolved]
  - Muscular weakness [Not Recovered/Not Resolved]
  - Cough [Recovered/Resolved]
  - Lethargy [Recovered/Resolved]
  - Lethargy [Not Recovered/Not Resolved]
  - Intentional product use issue [Unknown]

NARRATIVE: CASE EVENT DATE: 20220701
